FAERS Safety Report 17406595 (Version 1)
Quarter: 2020Q1

REPORT INFORMATION
  Report Type: Spontaneous
  Country: US (occurrence: US)
  Receive Date: 20200211
  Receipt Date: 20200211
  Transmission Date: 20200409
  Serious: No
  Sender: FDA-Public Use
  Company Number: None

PATIENT
  Age: 70 Year
  Sex: Female

DRUGS (1)
  1. KISQALI [Suspect]
     Active Substance: RIBOCICLIB

REACTIONS (4)
  - Abdominal pain upper [None]
  - Fatigue [None]
  - Body temperature decreased [None]
  - Decreased appetite [None]

NARRATIVE: CASE EVENT DATE: 20200211
